FAERS Safety Report 8574961-3 (Version None)
Quarter: 2012Q3

REPORT INFORMATION
  Report Type: 
  Country: None (occurrence: None)
  Receive Date: 20120807
  Receipt Date: 20120727
  Transmission Date: 20120928
  Serious: Yes (Hospitalization)
  Sender: FDA-Public Use
  Company Number: DE-SANOFI-AVENTIS-2012SA054527

PATIENT
  Age: 78 Year
  Sex: Female
  Weight: 103.6 kg

DRUGS (7)
  1. CLOPIDOGREL BISULFATE [Suspect]
     Indication: ANTICOAGULANT THERAPY
     Route: 048
     Dates: start: 20120518
  2. BISOPROLOL FUMARATE [Suspect]
     Indication: HYPERTENSION
     Route: 048
     Dates: start: 20120518
  3. ACETYLSALICYLIC ACID [Concomitant]
     Indication: ANTICOAGULANT THERAPY
     Dates: start: 20120518
  4. SIMVASTATIN [Concomitant]
     Dates: start: 20120518
  5. PANTOPRAZOLE [Concomitant]
     Dates: start: 20120518
  6. BLINDED THERAPY [Suspect]
     Indication: ACUTE MYOCARDIAL INFARCTION
     Route: 065
     Dates: start: 20120517, end: 20120517
  7. RAMIPRIL [Suspect]
     Indication: HYPERTENSION
     Route: 048
     Dates: start: 20120520

REACTIONS (2)
  - VERTIGO [None]
  - LEUKOPENIA [None]
